FAERS Safety Report 13004307 (Version 1)
Quarter: 2016Q4

REPORT INFORMATION
  Report Type: Spontaneous
  Country: US (occurrence: US)
  Receive Date: 20161206
  Receipt Date: 20161206
  Transmission Date: 20170207
  Serious: Yes (Hospitalization, Other)
  Sender: FDA-Public Use
  Company Number: US-ROCHE-1862211

PATIENT
  Age: 41 Year
  Sex: Male

DRUGS (19)
  1. CYCLOPHOSPHAMIDE. [Concomitant]
     Active Substance: CYCLOPHOSPHAMIDE
     Indication: NON-HODGKIN^S LYMPHOMA
     Dosage: DAY 1
     Route: 065
  2. METHOTREXATE. [Concomitant]
     Active Substance: METHOTREXATE
     Route: 065
  3. PEG/L-ASPARAGINASE [Concomitant]
     Active Substance: PEGASPARGASE
     Indication: NON-HODGKIN^S LYMPHOMA
     Dosage: 2500 UNITS/M2 DAY 5 GAVE ON DAY 6 25/AUG/2014
     Route: 065
  4. LOVENOX [Concomitant]
     Active Substance: ENOXAPARIN SODIUM
     Route: 058
     Dates: start: 20141029
  5. VINCRISTINE [Suspect]
     Active Substance: VINCRISTINE
     Indication: NON-HODGKIN^S LYMPHOMA
     Dosage: DAYS 1, 8, 15 AND 22
     Route: 042
  6. PENTAMIDINE [Concomitant]
     Active Substance: PENTAMIDINE
     Dosage: 16/DEC/2014 LAST RECEIVED
     Route: 055
  7. ASPIRIN. [Concomitant]
     Active Substance: ASPIRIN
     Route: 065
  8. METHOTREXATE. [Concomitant]
     Active Substance: METHOTREXATE
     Route: 037
     Dates: start: 20140821
  9. LOVENOX [Concomitant]
     Active Substance: ENOXAPARIN SODIUM
     Indication: PULMONARY EMBOLISM
     Dosage: FOR 10 DAYS
     Route: 058
  10. ARA-C [Concomitant]
     Active Substance: CYTARABINE
     Indication: NON-HODGKIN^S LYMPHOMA
  11. 6-TG [Concomitant]
     Indication: NON-HODGKIN^S LYMPHOMA
  12. DAUNORUBICIN [Suspect]
     Active Substance: DAUNORUBICIN
     Indication: NON-HODGKIN^S LYMPHOMA
     Dosage: DAYS 1-3
     Route: 065
  13. OXYCODONE [Concomitant]
     Active Substance: OXYCODONE
  14. RITUXAN [Suspect]
     Active Substance: RITUXIMAB
     Indication: NON-HODGKIN^S LYMPHOMA
     Dosage: DAYS 8 AND 15
     Route: 030
  15. NEUPOGEN [Concomitant]
     Active Substance: FILGRASTIM
     Dosage: DAY 4
     Route: 065
  16. 6-MP [Concomitant]
     Active Substance: MERCAPTOPURINE
     Indication: NON-HODGKIN^S LYMPHOMA
  17. DEXAMETHASONE. [Concomitant]
     Active Substance: DEXAMETHASONE
     Indication: NON-HODGKIN^S LYMPHOMA
  18. DOXORUBICIN [Concomitant]
     Active Substance: DOXORUBICIN
     Indication: NON-HODGKIN^S LYMPHOMA
  19. PREDNISONE. [Concomitant]
     Active Substance: PREDNISONE
     Indication: NON-HODGKIN^S LYMPHOMA
     Dosage: DAYS 1-21
     Route: 065

REACTIONS (20)
  - Diarrhoea [Recovering/Resolving]
  - Transaminases increased [Unknown]
  - Trigeminal nerve disorder [Recovered/Resolved]
  - Cough [Recovering/Resolving]
  - Vomiting [Recovering/Resolving]
  - Non-alcoholic steatohepatitis [Unknown]
  - Pulmonary embolism [Unknown]
  - Tooth infection [Recovered/Resolved]
  - Bacterial disease carrier [Unknown]
  - Sinusitis [Unknown]
  - Pulmonary oedema [Unknown]
  - Headache [Recovered/Resolved]
  - Splenomegaly [Unknown]
  - Herpes zoster [Unknown]
  - Ascites [Unknown]
  - Nausea [Recovering/Resolving]
  - Non-Hodgkin^s lymphoma recurrent [Unknown]
  - Mucosal inflammation [Unknown]
  - Cytopenia [Unknown]
  - Urinary retention [Unknown]

NARRATIVE: CASE EVENT DATE: 20141008
